FAERS Safety Report 25240203 (Version 6)
Quarter: 2025Q4

REPORT INFORMATION
  Report Type: Spontaneous
  Country: IN (occurrence: IN)
  Receive Date: 20250425
  Receipt Date: 20251204
  Transmission Date: 20260118
  Serious: Yes (Other)
  Sender: PFIZER
  Company Number: IN-PFIZER INC-PV202300110546

PATIENT
  Age: 68 Year
  Sex: Male

DRUGS (15)
  1. SUTENT [Suspect]
     Active Substance: SUNITINIB MALATE
     Indication: Metastatic renal cell carcinoma
     Dosage: 50 MG, CYCLIC, 1 WEEK ON 3 DAYS OFF FOR 4 WEEKS
     Route: 048
  2. SUTENT [Suspect]
     Active Substance: SUNITINIB MALATE
     Dosage: 50 MG, CYCLIC, 1X/DAY X 2 WEEKS  FOLLOWED BY 1 WEEK OFF
     Route: 048
  3. SUTENT [Suspect]
     Active Substance: SUNITINIB MALATE
     Dosage: 37.5 MG, CYCLIC, OD 1 WEEK ON 4 DAYS OFF
     Route: 048
  4. SUTENT [Suspect]
     Active Substance: SUNITINIB MALATE
     Dosage: 50 MG, CYCLIC, 7 DAYS ON AND 4 DAYS OFF
     Route: 048
     Dates: start: 20230512
  5. SUTENT [Suspect]
     Active Substance: SUNITINIB MALATE
     Dosage: 25 MG, 1X/DAY
     Route: 048
  6. PYRICONTIN [Concomitant]
     Dosage: 100 MG, 1X/DAY FOR 3 MONTHS
  7. CALCIUM [Concomitant]
     Active Substance: CALCIUM
     Dosage: 1 DF, 1X/DAY FOR 3 MONTHS
  8. VENUSIA [Concomitant]
     Dosage: UNK, HFS LA FOR 3 MONTHS
  9. DUTASTERIDE\TAMSULOSIN HYDROCHLORIDE [Concomitant]
     Active Substance: DUTASTERIDE\TAMSULOSIN HYDROCHLORIDE
     Dosage: 0.4 MG, 1X/DAY FOR 3 MONTHS
  10. LEVOTHYROXINE [Concomitant]
     Active Substance: LEVOTHYROXINE
     Dosage: 125 UG, 1X/DAY
  11. FEBUXOSTAT [Concomitant]
     Active Substance: FEBUXOSTAT
     Dosage: 40 MG, 2X/DAY FOR 10 DAYS
  12. RAZ PLUS [Concomitant]
     Dosage: UNK, 2X/DAY FOR 3 MONTHS
  13. ZOLPIDEM TARTRATE [Concomitant]
     Active Substance: ZOLPIDEM TARTRATE
     Dosage: 5 MG, (HS) BED TIME FOR 7 DAYS
  14. PHYTOCIN [Concomitant]
     Dosage: UNK, 1X/DAY FOR 3 MONTHS
  15. ALLOPURINOL [Concomitant]
     Active Substance: ALLOPURINOL
     Dosage: 100 MG, 1X/DAY FOR 2 MONTHS

REACTIONS (3)
  - Cardiac pacemaker insertion [Unknown]
  - Off label use [Unknown]
  - Product use issue [Unknown]
